FAERS Safety Report 8823989 (Version 1)
Quarter: 2012Q4

REPORT INFORMATION
  Report Type: 
  Country: US (occurrence: US)
  Receive Date: 20121003
  Receipt Date: 20121003
  Transmission Date: 20130627
  Serious: No
  Sender: FDA-Public Use
  Company Number: US-009507513-1210USA000915

PATIENT
  Sex: Male

DRUGS (8)
  1. JANUVIA [Suspect]
     Dosage: 0.5 DF, qd
     Route: 048
  2. DIOVAN [Concomitant]
  3. ASPIRIN [Concomitant]
  4. GLYBURIDE [Concomitant]
  5. ACTOS [Concomitant]
  6. LANTUS [Concomitant]
  7. ATENOLOL [Concomitant]
  8. LIPITOR [Concomitant]

REACTIONS (2)
  - Lip blister [Unknown]
  - Lip swelling [Unknown]
